FAERS Safety Report 20331893 (Version 14)
Quarter: 2024Q4

REPORT INFORMATION
  Report Type: Spontaneous
  Country: CA (occurrence: CA)
  Receive Date: 20220113
  Receipt Date: 20241107
  Transmission Date: 20250115
  Serious: Yes (Hospitalization, Other)
  Sender: PFIZER
  Company Number: CA-PFIZER INC-2021515675

PATIENT
  Age: 58 Year
  Sex: Female
  Weight: 61 kg

DRUGS (15)
  1. RUXIENCE [Suspect]
     Active Substance: RITUXIMAB-PVVR
     Indication: Rheumatoid arthritis
     Dosage: 1000 MG DAY 1 AND DAY 15 (EVERY 2 WEEK)
     Route: 042
     Dates: start: 20210503, end: 20210503
  2. RUXIENCE [Suspect]
     Active Substance: RITUXIMAB-PVVR
     Indication: Systemic scleroderma
     Dosage: 1000 MG DAY 1 AND DAY 15 (EVERY 2 WEEKS)
     Route: 042
     Dates: start: 20210518
  3. RUXIENCE [Suspect]
     Active Substance: RITUXIMAB-PVVR
     Indication: Myocarditis
     Dosage: 1 DF, UNKNOWN DOSAGE REGIMEN - NEXT DOSE SCHEDULED 14JUN2024
     Route: 042
     Dates: start: 20240531
  4. RUXIENCE [Suspect]
     Active Substance: RITUXIMAB-PVVR
     Indication: Polyarthritis
  5. RUXIENCE [Suspect]
     Active Substance: RITUXIMAB-PVVR
     Indication: Lymphoma
  6. BENADRYL [Concomitant]
     Active Substance: DIPHENHYDRAMINE HYDROCHLORIDE
     Indication: Premedication
     Dosage: 50 MG
     Route: 048
     Dates: start: 20210503, end: 20210503
  7. COVID-19 VACCINE [Concomitant]
     Dosage: UNK
  8. METHOTREXATE [Concomitant]
     Active Substance: METHOTREXATE
     Dosage: 15 MG, WEEKLY DISCONTINUED
     Route: 058
  9. METHOTREXATE [Concomitant]
     Active Substance: METHOTREXATE
     Dosage: 12.5 MG, WEEKLY (15MG THEN 12.5MG)
     Route: 058
  10. METHOTREXATE [Concomitant]
     Active Substance: METHOTREXATE
     Dosage: 15 MG, 11 EVERY WEEK, DISCONTINUED
     Route: 058
  11. METHOTREXATE [Concomitant]
     Active Substance: METHOTREXATE
     Dosage: 1 DF
     Dates: start: 2003
  12. METHOTREXATE [Concomitant]
     Active Substance: METHOTREXATE
     Dosage: 12500 UG, WEEKLY (15MG THEN 12.5MG)
     Route: 058
  13. PROLIA [Concomitant]
     Active Substance: DENOSUMAB
     Dosage: UNK Q 6 MONTHS
  14. SOLU-MEDROL [Concomitant]
     Active Substance: METHYLPREDNISOLONE SODIUM SUCCINATE
     Indication: Premedication
     Dosage: 100 MG
     Route: 042
     Dates: start: 20210503, end: 20210503
  15. TYLENOL [Concomitant]
     Active Substance: ACETAMINOPHEN
     Indication: Premedication
     Dosage: 650 MG
     Route: 048
     Dates: start: 20210503, end: 20210503

REACTIONS (30)
  - Thrombosis [Recovering/Resolving]
  - Infection [Recovering/Resolving]
  - Immunodeficiency [Not Recovered/Not Resolved]
  - Calcinosis [Unknown]
  - Scleroderma [Not Recovered/Not Resolved]
  - Gastric ulcer haemorrhage [Not Recovered/Not Resolved]
  - Pain in extremity [Not Recovered/Not Resolved]
  - Localised infection [Not Recovered/Not Resolved]
  - Blood iron decreased [Not Recovered/Not Resolved]
  - Finger amputation [Unknown]
  - Lymphoma [Recovering/Resolving]
  - Myocarditis [Recovering/Resolving]
  - Drug ineffective [Unknown]
  - Blood pressure increased [Unknown]
  - Pharyngeal paraesthesia [Recovered/Resolved]
  - Hot flush [Recovered/Resolved]
  - Back pain [Recovered/Resolved]
  - Diarrhoea [Recovered/Resolved]
  - Abdominal pain [Recovered/Resolved]
  - Blood glucose increased [Unknown]
  - Fatigue [Not Recovered/Not Resolved]
  - Condition aggravated [Recovering/Resolving]
  - Impaired quality of life [Unknown]
  - Nail avulsion [Unknown]
  - Asthenia [Not Recovered/Not Resolved]
  - COVID-19 [Not Recovered/Not Resolved]
  - Abdominal pain upper [Not Recovered/Not Resolved]
  - Cardiac disorder [Not Recovered/Not Resolved]
  - Anxiety [Unknown]
  - Neuralgia [Unknown]

NARRATIVE: CASE EVENT DATE: 20210503
